FAERS Safety Report 12958519 (Version 14)
Quarter: 2017Q2

REPORT INFORMATION
  Report Type: Spontaneous
  Country: CA (occurrence: CA)
  Receive Date: 20161121
  Receipt Date: 20170413
  Transmission Date: 20170830
  Serious: Yes (Hospitalization, Other)
  Sender: FDA-Public Use
  Company Number: CA-ROCHE-1855440

PATIENT
  Age: 66 Year
  Sex: Male

DRUGS (28)
  1. XOLAIR [Suspect]
     Active Substance: OMALIZUMAB
     Indication: ASTHMA
     Route: 058
     Dates: start: 20100421
  2. XOLAIR [Suspect]
     Active Substance: OMALIZUMAB
     Route: 058
  3. ADVAIR HFA [Concomitant]
     Active Substance: FLUTICASONE PROPIONATE\SALMETEROL XINAFOATE
     Indication: ASTHMA
     Dosage: 2 DF (250/50 UG), BID
     Route: 055
     Dates: start: 2006, end: 2015
  4. SINGULAIR [Concomitant]
     Active Substance: MONTELUKAST SODIUM
     Indication: ASTHMA
     Dosage: 1 DF, QD
     Route: 048
     Dates: start: 2006
  5. VITAMIN C [Concomitant]
     Active Substance: ASCORBIC ACID
     Indication: PRODUCT USED FOR UNKNOWN INDICATION
     Route: 065
  6. MIRTAZAPINE. [Concomitant]
     Active Substance: MIRTAZAPINE
     Indication: DEPRESSION
     Dosage: REPORTED AS AURO MIRTAZAPINE
     Route: 048
     Dates: start: 2002
  7. XOLAIR [Suspect]
     Active Substance: OMALIZUMAB
     Route: 058
  8. LIPITOR [Concomitant]
     Active Substance: ATORVASTATIN CALCIUM
     Dosage: 10 MG, QD
     Route: 065
     Dates: start: 2016
  9. LIPITOR [Concomitant]
     Active Substance: ATORVASTATIN CALCIUM
     Dosage: 40 MG, QD
     Route: 065
     Dates: start: 2016
  10. XOLAIR [Suspect]
     Active Substance: OMALIZUMAB
     Route: 058
     Dates: start: 20170310
  11. OMNARIS [Concomitant]
     Active Substance: CICLESONIDE
     Indication: THROAT IRRITATION
     Dosage: 2 DF, BID (1 SPRAY IN EACH NOSTRIL)
     Route: 055
     Dates: start: 2011
  12. LIPITOR [Concomitant]
     Active Substance: ATORVASTATIN CALCIUM
     Dosage: 40 MG, QD
     Route: 065
     Dates: start: 2016
  13. LIPITOR [Concomitant]
     Active Substance: ATORVASTATIN CALCIUM
     Dosage: 20 MG, QD
     Route: 065
     Dates: start: 2016
  14. LIPITOR [Concomitant]
     Active Substance: ATORVASTATIN CALCIUM
     Dosage: 20 MG, QD
     Route: 065
     Dates: start: 2016
  15. VITAMIN B12 [Concomitant]
     Active Substance: CYANOCOBALAMIN
     Indication: PRODUCT USED FOR UNKNOWN INDICATION
     Route: 065
  16. OMEGA 3-6-9 (CANADA) [Concomitant]
     Indication: PRODUCT USED FOR UNKNOWN INDICATION
     Dosage: 3 DF, QD
     Route: 065
  17. XOLAIR [Suspect]
     Active Substance: OMALIZUMAB
     Dosage: UNK
     Route: 058
     Dates: start: 20170206
  18. XOLAIR [Suspect]
     Active Substance: OMALIZUMAB
     Dosage: UNK
     Route: 058
     Dates: start: 20170109
  19. ADVAIR HFA [Concomitant]
     Active Substance: FLUTICASONE PROPIONATE\SALMETEROL XINAFOATE
     Dosage: 2 DF (500/50 UG), BID
     Route: 055
     Dates: start: 2015
  20. VENTOLIN [Concomitant]
     Active Substance: ALBUTEROL SULFATE
     Indication: ASTHMA
     Dosage: 2 DF, PRN
     Route: 055
     Dates: start: 2006, end: 2015
  21. B-COMPLEX PLUS [Concomitant]
     Indication: PRODUCT USED FOR UNKNOWN INDICATION
     Route: 065
  22. FOLIC ACID. [Concomitant]
     Active Substance: FOLIC ACID
     Indication: PRODUCT USED FOR UNKNOWN INDICATION
     Route: 065
     Dates: start: 2014
  23. XOLAIR [Suspect]
     Active Substance: OMALIZUMAB
     Route: 058
  24. XOLAIR [Suspect]
     Active Substance: OMALIZUMAB
     Dosage: UNK
     Route: 058
     Dates: start: 20111212, end: 20120706
  25. XOLAIR [Suspect]
     Active Substance: OMALIZUMAB
     Dosage: UNK
     Route: 058
     Dates: start: 20161212
  26. LIPITOR [Concomitant]
     Active Substance: ATORVASTATIN CALCIUM
     Indication: DYSLIPIDAEMIA
     Dosage: 1 DF (20 MG), QD
     Route: 048
     Dates: start: 2001
  27. XOLAIR [Suspect]
     Active Substance: OMALIZUMAB
     Dosage: UNK
     Route: 058
     Dates: start: 20170120
  28. SYMBICORT [Concomitant]
     Active Substance: BUDESONIDE\FORMOTEROL FUMARATE DIHYDRATE
     Indication: ASTHMA
     Dosage: 2 DF, BID
     Route: 055
     Dates: start: 20161028, end: 20161109

REACTIONS (47)
  - Asthma [Unknown]
  - Diastolic dysfunction [Unknown]
  - Pulmonary oedema [Unknown]
  - Gastrooesophageal reflux disease [Unknown]
  - Parosmia [Recovered/Resolved]
  - Red blood cell count decreased [Unknown]
  - Arteriosclerosis coronary artery [Unknown]
  - Purpura [Unknown]
  - Vasculitis [Unknown]
  - Respiratory disorder [Unknown]
  - Lung consolidation [Unknown]
  - Anosmia [Not Recovered/Not Resolved]
  - Burning sensation [Unknown]
  - Fatigue [Unknown]
  - Cough [Unknown]
  - Forced expiratory volume decreased [Unknown]
  - Bronchial hyperreactivity [Unknown]
  - Haemoglobin decreased [Unknown]
  - Pain [Unknown]
  - Dyspnoea [Unknown]
  - Cardiac failure congestive [Unknown]
  - Eosinophilic granulomatosis with polyangiitis [Unknown]
  - Coronary artery occlusion [Unknown]
  - Pain in extremity [Unknown]
  - Mobility decreased [Unknown]
  - Infection [Unknown]
  - Arthralgia [Unknown]
  - White blood cell count increased [Unknown]
  - Pneumonia [Unknown]
  - Eosinophilia [Unknown]
  - Abasia [Unknown]
  - Hypoaesthesia [Unknown]
  - Atelectasis [Unknown]
  - Haematocrit decreased [Unknown]
  - Malaise [Unknown]
  - Skin discolouration [Unknown]
  - Respiratory tract congestion [Unknown]
  - Weight decreased [Unknown]
  - Pleural effusion [Unknown]
  - Blood pressure systolic increased [Unknown]
  - Blood immunoglobulin M increased [Unknown]
  - Limb discomfort [Unknown]
  - Wheezing [Unknown]
  - Eosinophil count increased [Unknown]
  - Musculoskeletal pain [Unknown]
  - Blood immunoglobulin E increased [Unknown]
  - Lymphocyte count decreased [Unknown]

NARRATIVE: CASE EVENT DATE: 2015
